FAERS Safety Report 12991043 (Version 2)
Quarter: 2017Q2

REPORT INFORMATION
  Report Type: Report from Study
  Country: US (occurrence: US)
  Receive Date: 20161201
  Receipt Date: 20170614
  Transmission Date: 20170830
  Serious: Yes (Hospitalization)
  Sender: FDA-Public Use
  Company Number: US-GILEAD-2016-0245673

PATIENT
  Age: 64 Year
  Sex: Male

DRUGS (3)
  1. WARFARIN [Interacting]
     Active Substance: WARFARIN
     Indication: ATRIAL FIBRILLATION
     Dosage: UNK
     Route: 065
     Dates: start: 2011
  2. LEDIPASVIR/SOFOSBUVIR [Suspect]
     Active Substance: LEDIPASVIR\SOFOSBUVIR
     Indication: CHRONIC HEPATITIS C
     Dosage: UNK
     Route: 065
     Dates: start: 2015
  3. WARFARIN [Interacting]
     Active Substance: WARFARIN
     Dosage: TOTAL WARFARIN DOSE INCREASE OF 33% (40MG/WEEK)
     Route: 065
     Dates: start: 2011

REACTIONS (3)
  - Haemorrhage [Unknown]
  - Drug interaction [Unknown]
  - International normalised ratio decreased [Recovered/Resolved]
